FAERS Safety Report 9749279 (Version 2)
Quarter: 2014Q1

REPORT INFORMATION
  Report Type: Spontaneous
  Country: US (occurrence: US)
  Receive Date: 20131212
  Receipt Date: 20140312
  Transmission Date: 20141002
  Serious: No
  Sender: FDA-Public Use
  Company Number: US-INCYTE CORPORATION-2013IN002555

PATIENT
  Sex: Male

DRUGS (9)
  1. JAKAFI [Suspect]
     Indication: MYELOFIBROSIS
     Dosage: 20 MG, BID
     Route: 048
     Dates: start: 20130923
  2. METFORMIN [Concomitant]
  3. OMEPRAZOLE [Concomitant]
  4. LISINOPRIL [Concomitant]
  5. DOXASIN [Concomitant]
  6. XANAX [Concomitant]
  7. METOPROLOL [Concomitant]
  8. POTASSIUM CITRATE [Concomitant]
  9. ASPIRIN [Concomitant]

REACTIONS (1)
  - Blood glucose increased [Unknown]
